FAERS Safety Report 12448529 (Version 1)
Quarter: 2016Q2

REPORT INFORMATION
  Report Type: Other
  Country: US (occurrence: US)
  Receive Date: 20160608
  Receipt Date: 20160608
  Transmission Date: 20160815
  Serious: Yes (Hospitalization, Other)
  Sender: FDA-Public Use
  Company Number: US-CONCORDIA PHARMACEUTICALS INC.-CO-PL-US-2016-258

PATIENT
  Age: 91 Year
  Sex: Female

DRUGS (3)
  1. QUININE SULFATE. [Suspect]
     Active Substance: QUININE SULFATE
     Indication: MUSCLE SPASMS
     Route: 065
  2. AMIODARONE [Suspect]
     Active Substance: AMIODARONE
     Indication: VENTRICULAR TACHYCARDIA
     Route: 065
  3. PLAQUENIL [Suspect]
     Active Substance: HYDROXYCHLOROQUINE SULFATE
     Indication: RHEUMATOID ARTHRITIS
     Route: 065

REACTIONS (18)
  - Aggression [None]
  - Toxicity to various agents [None]
  - Blood potassium decreased [Recovering/Resolving]
  - Bradycardia [Recovering/Resolving]
  - Mental disorder [None]
  - Diarrhoea [Recovering/Resolving]
  - Long QT syndrome [Recovered/Resolved]
  - Ventricular extrasystoles [None]
  - Troponin I increased [None]
  - Vomiting [Recovering/Resolving]
  - Confusional state [None]
  - Nausea [Recovering/Resolving]
  - Ventricular tachycardia [None]
  - Disorientation [None]
  - Slow response to stimuli [None]
  - Torsade de pointes [Recovering/Resolving]
  - Agitation [None]
  - Condition aggravated [None]
